FAERS Safety Report 24262604 (Version 3)
Quarter: 2024Q4

REPORT INFORMATION
  Report Type: Report from Study
  Country: US (occurrence: US)
  Receive Date: 20240829
  Receipt Date: 20241029
  Transmission Date: 20250114
  Serious: No
  Sender: ACADIA PHARMACEUTICALS
  Company Number: US-ACADIA PHARMACEUTICALS INC.-ACA-2024-PIM-004465

PATIENT
  Sex: Male

DRUGS (14)
  1. NUPLAZID [Suspect]
     Active Substance: PIMAVANSERIN TARTRATE
     Indication: Parkinson^s disease psychosis
     Dosage: 34 MILLIGRAM, QD
     Route: 048
     Dates: start: 202407
  2. TRAMADOL [Concomitant]
     Active Substance: TRAMADOL
  3. LORAZEPAM [Concomitant]
     Active Substance: LORAZEPAM
  4. HYDROCODONE [Concomitant]
     Active Substance: HYDROCODONE
  5. ONDANSETRON [Concomitant]
     Active Substance: ONDANSETRON
  6. ASPIRIN [Concomitant]
     Active Substance: ASPIRIN
  7. METOPROLOL [Concomitant]
     Active Substance: METOPROLOL
  8. ATORVASTATIN [Concomitant]
     Active Substance: ATORVASTATIN
  9. LOSARTAN [Concomitant]
     Active Substance: LOSARTAN
  10. AMITRIPTYLINE [Concomitant]
     Active Substance: AMITRIPTYLINE
  11. METFORMIN [Concomitant]
     Active Substance: METFORMIN HYDROCHLORIDE
  12. METHIMAZOLE [Concomitant]
     Active Substance: METHIMAZOLE
  13. CARBIDOPA [Concomitant]
     Active Substance: CARBIDOPA
  14. PANTOPRAZOLE [Concomitant]
     Active Substance: PANTOPRAZOLE

REACTIONS (3)
  - Hallucination, visual [Not Recovered/Not Resolved]
  - Hallucination [Unknown]
  - Drug ineffective [Not Recovered/Not Resolved]
